FAERS Safety Report 7556058-4 (Version None)
Quarter: 2011Q2

REPORT INFORMATION
  Report Type: 
  Country: None (occurrence: None)
  Receive Date: 20110620
  Receipt Date: 20110613
  Transmission Date: 20111010
  Serious: No
  Sender: FDA-Public Use
  Company Number: US-BIOGENIDEC-2010BI033541

PATIENT
  Sex: Female

DRUGS (3)
  1. TYSABRI [Suspect]
     Route: 042
  2. AVONEX [Concomitant]
     Indication: MULTIPLE SCLEROSIS
     Route: 030
     Dates: start: 20080805
  3. TYSABRI [Suspect]
     Indication: MULTIPLE SCLEROSIS
     Route: 042
     Dates: start: 20081010, end: 20100901

REACTIONS (4)
  - ASTHENIA [None]
  - FEELING ABNORMAL [None]
  - DRUG INEFFECTIVE [None]
  - DRUG EFFECT DECREASED [None]
